FAERS Safety Report 5203211-0 (Version None)
Quarter: 2006Q4

REPORT INFORMATION
  Report Type: 
  Country: None (occurrence: None)
  Receive Date: 20061016
  Receipt Date: 20060202
  Transmission Date: 20070319
  Serious: Yes (Other)
  Sender: FDA-Public Use
  Company Number: 2006000518

PATIENT
  Sex: 0

DRUGS (5)
  1. NEURONTIN [Suspect]
     Indication: POST HERPETIC NEURALGIA
     Dates: start: 20050404, end: 20050613
  2. LIPITOR [Suspect]
     Indication: HYPERCHOLESTEROLAEMIA
     Dosage: 40 MG (40 MG, 1 IN 1 D)
  3. ACTONEL [Concomitant]
  4. SYNTHROID [Concomitant]
  5. LOTENSIN [Concomitant]

REACTIONS (2)
  - HYPERCHOLESTEROLAEMIA [None]
  - LIVER FUNCTION TEST ABNORMAL [None]
